FAERS Safety Report 12127423 (Version 1)
Quarter: 2016Q1

REPORT INFORMATION
  Report Type: Spontaneous
  Country: NL (occurrence: NL)
  Receive Date: 20160229
  Receipt Date: 20160229
  Transmission Date: 20160526
  Serious: Yes (Other)
  Sender: FDA-Public Use
  Company Number: NL-WATSON-2016-04418

PATIENT
  Age: 65 Year
  Sex: Female

DRUGS (6)
  1. AZATHIOPRINE (UNKNOWN) [Interacting]
     Active Substance: AZATHIOPRINE
     Dosage: 150 MG, DAILY
     Route: 065
  2. PREDNISOLONE. [Concomitant]
     Active Substance: PREDNISOLONE
     Indication: DYSHIDROTIC ECZEMA
  3. AZATHIOPRINE (UNKNOWN) [Interacting]
     Active Substance: AZATHIOPRINE
     Indication: DERMATITIS ATOPIC
     Dosage: 50 MG, DAILY
     Route: 065
  4. OMEPRAZOLE (UNKNOWN) [Suspect]
     Active Substance: OMEPRAZOLE
     Indication: GASTROINTESTINAL DISORDER
     Dosage: 20 MG, DAILY
     Route: 065
  5. AZATHIOPRINE (UNKNOWN) [Interacting]
     Active Substance: AZATHIOPRINE
     Indication: DYSHIDROTIC ECZEMA
     Dosage: 100 MG, DAILY
     Route: 065
  6. PREDNISOLONE. [Concomitant]
     Active Substance: PREDNISOLONE
     Indication: DERMATITIS ATOPIC
     Dosage: 20?30 MG PER DAY IN A TAPERING DOSE
     Route: 048

REACTIONS (2)
  - Drug interaction [Recovered/Resolved]
  - Liver injury [Recovered/Resolved]
